FAERS Safety Report 24980729 (Version 1)
Quarter: 2025Q1

REPORT INFORMATION
  Report Type: Spontaneous
  Country: PT (occurrence: PT)
  Receive Date: 20250218
  Receipt Date: 20250218
  Transmission Date: 20250409
  Serious: Yes (Death, Other)
  Sender: NOVARTIS
  Company Number: PT-AUROBINDO-AUR-APL-2019-004356

PATIENT
  Age: 79 Year
  Sex: Male

DRUGS (2)
  1. CYCLOSPORINE [Suspect]
     Active Substance: CYCLOSPORINE
     Indication: Immunosuppressant drug therapy
     Route: 065
  2. PREDNISOLONE [Suspect]
     Active Substance: PREDNISOLONE
     Indication: Immunosuppressant drug therapy
     Route: 065

REACTIONS (5)
  - Endocarditis [Fatal]
  - Endocarditis pseudomonal [Fatal]
  - Disease recurrence [Fatal]
  - Sepsis [Fatal]
  - Pyrexia [Unknown]
